FAERS Safety Report 9893678 (Version 2)
Quarter: 2014Q1

REPORT INFORMATION
  Report Type: Spontaneous
  Country: US (occurrence: US)
  Receive Date: 20140213
  Receipt Date: 20140220
  Transmission Date: 20141002
  Serious: Yes (Hospitalization)
  Sender: FDA-Public Use
  Company Number: US-PFIZER INC-2014040984

PATIENT
  Age: 57 Year
  Sex: Male
  Weight: 138.32 kg

DRUGS (9)
  1. LYRICA [Suspect]
     Indication: BACK PAIN
     Dosage: UNK
     Route: 048
  2. LYRICA [Suspect]
     Indication: NECK PAIN
  3. LYRICA [Suspect]
     Indication: PAIN IN EXTREMITY
  4. CELEBREX [Suspect]
     Indication: BACK PAIN
     Dosage: UNK
     Route: 048
  5. CELEBREX [Suspect]
     Indication: NECK PAIN
  6. CELEBREX [Suspect]
     Indication: PAIN IN EXTREMITY
  7. LIPITOR [Suspect]
     Indication: BACK PAIN
     Dosage: UNK
     Route: 048
  8. LIPITOR [Suspect]
     Indication: NECK PAIN
  9. LIPITOR [Suspect]
     Indication: PAIN IN EXTREMITY

REACTIONS (3)
  - Off label use [Unknown]
  - Osteomyelitis [Not Recovered/Not Resolved]
  - Diabetic complication [Not Recovered/Not Resolved]
